FAERS Safety Report 4391748-6 (Version None)
Quarter: 2004Q3

REPORT INFORMATION
  Report Type: 
  Country: None (occurrence: None)
  Receive Date: 20040707
  Receipt Date: 20040702
  Transmission Date: 20050211
  Serious: Yes (Hospitalization, Other)
  Sender: FDA-Public Use
  Company Number: LB-MERCK-0407USA00177

PATIENT
  Sex: Female

DRUGS (3)
  1. CORVASAL [Concomitant]
     Route: 065
  2. ZOCOR [Suspect]
     Route: 048
  3. VASTAREL [Concomitant]
     Route: 065

REACTIONS (1)
  - CARDIAC DISORDER [None]
